FAERS Safety Report 24328388 (Version 1)
Quarter: 2024Q3

REPORT INFORMATION
  Report Type: Spontaneous
  Country: US (occurrence: US)
  Receive Date: 20240917
  Receipt Date: 20240917
  Transmission Date: 20241017
  Serious: No
  Sender: PFIZER
  Company Number: US-PFIZER INC-202400086478

PATIENT
  Age: 93 Year
  Sex: Female

DRUGS (5)
  1. XELJANZ XR [Suspect]
     Active Substance: TOFACITINIB CITRATE
     Dosage: 11 MG
  2. COREG [Concomitant]
     Active Substance: CARVEDILOL
  3. EZETIMIBE [Concomitant]
     Active Substance: EZETIMIBE
  4. LASIX [Concomitant]
     Active Substance: FUROSEMIDE
  5. TRAMADOL [Concomitant]
     Active Substance: TRAMADOL\TRAMADOL HYDROCHLORIDE

REACTIONS (2)
  - Fall [Unknown]
  - Limb injury [Unknown]
